FAERS Safety Report 21261864 (Version 1)
Quarter: 2022Q3

REPORT INFORMATION
  Report Type: Report from Study
  Country: MX (occurrence: MX)
  Receive Date: 20220827
  Receipt Date: 20220827
  Transmission Date: 20221026
  Serious: Yes (Other)
  Sender: FDA-Public Use
  Company Number: MX-NOVARTISPH-NVSC2022MX193142

PATIENT
  Sex: Female
  Weight: 66 kg

DRUGS (2)
  1. METFORMIN HYDROCHLORIDE\VILDAGLIPTIN [Suspect]
     Active Substance: METFORMIN HYDROCHLORIDE\VILDAGLIPTIN
     Indication: Diabetes mellitus
     Dosage: 0.5 DOSAGE FORM, QD (START DATE: 3 MONTHS AGO APPROXIMATELY)
     Route: 048
  2. METFORMIN HYDROCHLORIDE\VILDAGLIPTIN [Suspect]
     Active Substance: METFORMIN HYDROCHLORIDE\VILDAGLIPTIN
     Dosage: 1 DOSAGE FORM, QD
     Route: 048

REACTIONS (4)
  - Rib fracture [Not Recovered/Not Resolved]
  - Fall [Recovering/Resolving]
  - Blood glucose increased [Unknown]
  - Wrong technique in product usage process [Unknown]
